FAERS Safety Report 11760432 (Version 2)
Quarter: 2015Q4

REPORT INFORMATION
  Report Type: Spontaneous
  Country: JP (occurrence: JP)
  Receive Date: 20151120
  Receipt Date: 20151219
  Transmission Date: 20160304
  Serious: Yes (Death, Hospitalization, Other)
  Sender: FDA-Public Use
  Company Number: JP-AMGEN-JPNSP2015083563

PATIENT
  Age: 66 Year
  Sex: Male
  Weight: 46 kg

DRUGS (12)
  1. ZETIA [Concomitant]
     Active Substance: EZETIMIBE
     Indication: DYSLIPIDAEMIA
     Dosage: 10 MG, QD
     Route: 048
     Dates: start: 20100402
  2. FLUOROURACIL. [Suspect]
     Active Substance: FLUOROURACIL
     Dosage: 3500 MG, Q2WEEKS
     Route: 041
     Dates: start: 20140318, end: 20150721
  3. MINOMYCIN [Concomitant]
     Active Substance: MINOCYCLINE HYDROCHLORIDE
     Indication: DERMATITIS ACNEIFORM
     Dosage: 50 MG, BID
     Route: 048
     Dates: start: 20140610
  4. VECTIBIX [Suspect]
     Active Substance: PANITUMUMAB
     Indication: COLON CANCER
     Dosage: 300 MG, Q2WEEKS
     Route: 041
     Dates: start: 20140318, end: 20150721
  5. PYDOXAL [Concomitant]
     Active Substance: PYRIDOXAL
     Indication: NEUROPATHY PERIPHERAL
     Dosage: 10 MG, TID
     Route: 048
     Dates: start: 20140320, end: 20140320
  6. ATELEC [Concomitant]
     Active Substance: CILNIDIPINE
     Indication: HYPERTENSION
     Dosage: 10 MG, QD
     Route: 048
     Dates: start: 20100402
  7. GOSHAJINKIGAN [Concomitant]
     Active Substance: HERBALS
     Indication: NEUROPATHY PERIPHERAL
     Dosage: 2.5 G, TID
     Route: 048
     Dates: start: 20140320
  8. MAGNESIUM OXIDE. [Concomitant]
     Active Substance: MAGNESIUM OXIDE
     Indication: CONSTIPATION
     Dosage: 500 MG, TID
     Route: 048
     Dates: start: 20140401
  9. FLUOROURACIL. [Suspect]
     Active Substance: FLUOROURACIL
     Indication: COLON CANCER
     Dosage: UNK UNK, Q2WK
     Route: 040
     Dates: start: 20140318, end: 20150721
  10. ELPLAT [Suspect]
     Active Substance: OXALIPLATIN
     Indication: COLON CANCER
     Dosage: 100 MG, Q2WEEKS
     Route: 041
     Dates: start: 20140318, end: 20150721
  11. CALCIUM LEVOFOLINATE [Suspect]
     Active Substance: LEVOLEUCOVORIN CALCIUM
     Indication: COLON CANCER
     Dosage: 300 MG, Q2WEEKS
     Route: 041
     Dates: start: 20140318, end: 20150721
  12. ALOXI [Concomitant]
     Active Substance: PALONOSETRON HYDROCHLORIDE
     Indication: PROPHYLAXIS OF NAUSEA AND VOMITING
     Dosage: 0.75 MG, Q2WEEKS
     Route: 041
     Dates: start: 20140318, end: 20150721

REACTIONS (1)
  - Interstitial lung disease [Fatal]

NARRATIVE: CASE EVENT DATE: 20150804
